FAERS Safety Report 6034071-6 (Version None)
Quarter: 2009Q1

REPORT INFORMATION
  Report Type: 
  Country: None (occurrence: None)
  Receive Date: 20090108
  Receipt Date: 20081230
  Transmission Date: 20090719
  Serious: Yes (Hospitalization)
  Sender: FDA-Public Use
  Company Number: 2008US003315

PATIENT
  Age: 29 Year
  Sex: Female
  Weight: 95.2 kg

DRUGS (5)
  1. AMEVIVE [Suspect]
     Indication: PSORIASIS
     Dosage: 15 MG, WEEKLY, INTRAMUSCULAR, 15 MG, WEEKLY, INTRAMUSCULAR
     Route: 030
     Dates: start: 20070221, end: 20070606
  2. AMEVIVE [Suspect]
     Indication: PSORIASIS
     Dosage: 15 MG, WEEKLY, INTRAMUSCULAR, 15 MG, WEEKLY, INTRAMUSCULAR
     Route: 030
     Dates: start: 20071018, end: 20080207
  3. DEPAKOTE [Concomitant]
  4. PREVACID [Concomitant]
  5. KEPPRA [Concomitant]

REACTIONS (2)
  - HEADACHE [None]
  - SHUNT MALFUNCTION [None]
